FAERS Safety Report 8465030-1 (Version None)
Quarter: 2012Q2

REPORT INFORMATION
  Report Type: 
  Country: None (occurrence: None)
  Receive Date: 20120618
  Receipt Date: 20120507
  Transmission Date: 20120825
  Serious: Yes (Death, Other)
  Sender: FDA-Public Use
  Company Number: 2012P1023654

PATIENT
  Age: 52 Year
  Sex: Male
  Weight: 62 kg

DRUGS (2)
  1. HYDROMORPHONE HCL [Suspect]
     Indication: NEPHROLITHIASIS
     Dosage: 2 MG;Q2HX4;IV
     Route: 042
  2. ZOLPIDEM [Suspect]
     Indication: NEPHROLITHIASIS
     Dosage: 10 MG;X1;PO
     Route: 048

REACTIONS (4)
  - PULSE ABSENT [None]
  - RESPIRATORY ARREST [None]
  - DRUG INTERACTION [None]
  - MEDICATION ERROR [None]
